FAERS Safety Report 5692849-2 (Version None)
Quarter: 2008Q2

REPORT INFORMATION
  Report Type: 
  Country: None (occurrence: None)
  Receive Date: 20080401
  Receipt Date: 20080213
  Transmission Date: 20081010
  Serious: Yes (Disabling, Other)
  Sender: FDA-Public Use
  Company Number: 2008AL001627

PATIENT
  Age: 68 Year
  Sex: Male

DRUGS (9)
  1. GABAPENTIN [Suspect]
     Dosage: 300 MG; TID; PO
     Route: 048
     Dates: start: 20071201, end: 20080101
  2. NOVOLOG MIX 70/30 [Concomitant]
  3. METFORMIN HCL [Concomitant]
  4. ASPIRIN [Concomitant]
  5. DIGOXIN [Concomitant]
  6. BUMETANIDE [Concomitant]
  7. ENALAPRIL MALEATE [Concomitant]
  8. SPIRONOLACTONE [Concomitant]
  9. SIMVASTATIN [Concomitant]

REACTIONS (1)
  - LOSS OF CONSCIOUSNESS [None]
